FAERS Safety Report 9047028 (Version 1)
Quarter: 2013Q1

REPORT INFORMATION
  Report Type: Spontaneous
  Country: US (occurrence: None)
  Receive Date: 20130129
  Receipt Date: 20130129
  Transmission Date: 20140127
  Serious: Yes (Hospitalization)
  Sender: FDA-Public Use
  Company Number: None

PATIENT
  Age: 79 Year
  Sex: Male
  Weight: 75 kg

DRUGS (3)
  1. PRADAXA? [Suspect]
     Indication: ATRIAL FIBRILLATION
     Dates: start: 20120501, end: 20130121
  2. ASPIRIN [Concomitant]
  3. AMIODARONE [Concomitant]

REACTIONS (1)
  - Gastrointestinal haemorrhage [None]
